FAERS Safety Report 14719397 (Version 4)
Quarter: 2018Q3

REPORT INFORMATION
  Report Type: Other
  Country: DE (occurrence: DE)
  Receive Date: 20180405
  Receipt Date: 20180709
  Transmission Date: 20181010
  Serious: No
  Sender: FDA-Public Use
  Company Number: DE-LUPIN PHARMACEUTICALS INC.-2017-07984

PATIENT
  Age: 71 Year
  Sex: Female
  Weight: 75 kg

DRUGS (11)
  1. DULOXETINE GASTRO?RESISTANT CAPSULES HARD [Suspect]
     Active Substance: DULOXETINE
     Indication: SEDATION
     Dosage: UNK
     Route: 048
  2. DEKRISTOL [Concomitant]
     Active Substance: CHOLECALCIFEROL
     Indication: PRODUCT USED FOR UNKNOWN INDICATION
     Dosage: 20 IU, UNK (ONCE WEEKLY)
     Route: 048
  3. CITALOPRAM ARISTO [Concomitant]
     Indication: RESTLESSNESS
     Dosage: 10 MG, QD
     Route: 065
     Dates: start: 20161223
  4. RESOLOR [Concomitant]
     Active Substance: PRUCALOPRIDE SUCCINATE
     Indication: CONSTIPATION
     Dosage: 2 MG, UNK (1?0?0?0)
     Route: 048
  5. CITALOPRAM [Concomitant]
     Active Substance: CITALOPRAM HYDROBROMIDE
     Indication: RESTLESSNESS
     Dosage: UNK
     Route: 065
  6. TRIMIPRAMINE [Concomitant]
     Active Substance: TRIMIPRAMINE
     Indication: PRODUCT USED FOR UNKNOWN INDICATION
     Dosage: UNK, QD
     Route: 048
  7. DULOXETINE GASTRO?RESISTANT CAPSULES HARD [Suspect]
     Active Substance: DULOXETINE
     Indication: ANALGESIC THERAPY
     Dosage: UNK
     Route: 048
  8. NOVAMINSULFON [Concomitant]
     Active Substance: METAMIZOLE
     Indication: PRODUCT USED FOR UNKNOWN INDICATION
     Dosage: UNK UNK, PRN (IF NECESSARY)
     Route: 048
  9. VOCADO [Concomitant]
     Active Substance: AMLODIPINE BESYLATE\OLMESARTAN MEDOXOMIL
     Indication: PRODUCT USED FOR UNKNOWN INDICATION
     Dosage: 1 DF, QD
     Route: 048
  10. DULOXETINE GASTRO?RESISTANT CAPSULES HARD [Suspect]
     Active Substance: DULOXETINE
     Indication: DEPRESSION
     Dosage: 30 MG, QD
     Route: 048
     Dates: start: 20170816, end: 20171205
  11. BISOPROLOL [Concomitant]
     Active Substance: BISOPROLOL
     Indication: PRODUCT USED FOR UNKNOWN INDICATION
     Dosage: 5 MG, QD
     Route: 048

REACTIONS (9)
  - Constipation [Recovered/Resolved]
  - Periodontitis [Not Recovered/Not Resolved]
  - Gingival recession [Unknown]
  - Micturition urgency [Not Recovered/Not Resolved]
  - Tooth disorder [Unknown]
  - Dry mouth [Recovered/Resolved]
  - Product use in unapproved indication [Unknown]
  - Gingival bleeding [Not Recovered/Not Resolved]
  - Gingival erosion [Unknown]

NARRATIVE: CASE EVENT DATE: 2017
